FAERS Safety Report 4493314-0 (Version None)
Quarter: 2004Q4

REPORT INFORMATION
  Report Type: 
  Country: None (occurrence: None)
  Receive Date: 20041102
  Receipt Date: 20041015
  Transmission Date: 20050328
  Serious: Yes (Hospitalization)
  Sender: FDA-Public Use
  Company Number: USA041081270

PATIENT
  Age: 45 Year
  Sex: Male

DRUGS (3)
  1. CYMBALTA [Suspect]
     Indication: MAJOR DEPRESSION
     Dosage: 60 MG DAY
     Dates: start: 20040901
  2. PROZAC [Suspect]
     Indication: MAJOR DEPRESSION
     Dosage: 40 MG/1 DAY
  3. WELLBUTRIN [Concomitant]

REACTIONS (5)
  - DISEASE RECURRENCE [None]
  - DRUG INEFFECTIVE [None]
  - MAJOR DEPRESSION [None]
  - RELATIONSHIP BREAKDOWN [None]
  - STRESS SYMPTOMS [None]
